FAERS Safety Report 9887339 (Version 1)
Quarter: 2014Q1

REPORT INFORMATION
  Report Type: Spontaneous
  Country: FR (occurrence: FR)
  Receive Date: 20140211
  Receipt Date: 20140211
  Transmission Date: 20141002
  Serious: Yes (Hospitalization)
  Sender: FDA-Public Use
  Company Number: FR-MERCK-1402FRA003189

PATIENT
  Age: 66 Year
  Sex: Female

DRUGS (4)
  1. VICTRELIS [Suspect]
     Dosage: UNK
     Route: 048
     Dates: start: 201202
  2. LEVOTHYROX [Suspect]
     Dosage: UNK
     Route: 048
     Dates: start: 20131105, end: 20131105
  3. PEGINTERFERON ALFA-2B [Suspect]
     Dosage: UNK
     Dates: start: 201202
  4. RIBAVIRIN [Suspect]
     Dosage: UNK
     Route: 048
     Dates: start: 201202

REACTIONS (1)
  - Deep vein thrombosis [Recovered/Resolved]
